FAERS Safety Report 20471859 (Version 2)
Quarter: 2022Q2

REPORT INFORMATION
  Report Type: Spontaneous
  Country: JP (occurrence: JP)
  Receive Date: 20220214
  Receipt Date: 20220408
  Transmission Date: 20220720
  Serious: No
  Sender: FDA-Public Use
  Company Number: JP-MYOVANT SCIENCES GMBH-2022MYSCI0200091

PATIENT
  Age: 44 Year
  Sex: Female

DRUGS (1)
  1. RELUGOLIX [Suspect]
     Active Substance: RELUGOLIX
     Indication: Uterine leiomyoma
     Dosage: 40 MILLIGRAM, QD
     Route: 048
     Dates: start: 20210531, end: 20211017

REACTIONS (1)
  - Hypertension [Unknown]

NARRATIVE: CASE EVENT DATE: 20210819
